FAERS Safety Report 8585664-3 (Version None)
Quarter: 2012Q3

REPORT INFORMATION
  Report Type: 
  Country: None (occurrence: None)
  Receive Date: 20120810
  Receipt Date: 20120731
  Transmission Date: 20120928
  Serious: Yes (Other)
  Sender: FDA-Public Use
  Company Number: GB-B.I. PHARMACEUTICALS,INC./RIDGEFIELD-2012-UK-00323UK

PATIENT
  Age: 51 Year
  Sex: Female
  Weight: 72 kg

DRUGS (10)
  1. FERROUS SULFATE TAB [Concomitant]
     Dates: start: 20111109
  2. GABAPENTIN [Concomitant]
     Dates: start: 20111109
  3. OMEPRAZOLE [Concomitant]
     Dates: start: 20111109
  4. PRAMIPEXOLE DIHYDROCHLORIDE [Suspect]
     Dates: start: 20111109
  5. DIPIPANONE [Concomitant]
     Dates: start: 20111109
  6. AMITRIPTYLINE HCL [Concomitant]
     Dates: start: 20111109, end: 20111123
  7. PIROXICAM [Concomitant]
     Dates: start: 20111027
  8. ATORVASTATIN [Concomitant]
     Dates: start: 20111109
  9. FLUOXETINE HCL [Concomitant]
     Dates: start: 20111116
  10. ACETAMINOPHEN [Concomitant]
     Dates: start: 20111109

REACTIONS (2)
  - GAMBLING [None]
  - OBSESSIVE-COMPULSIVE DISORDER [None]
